FAERS Safety Report 11478240 (Version 2)
Quarter: 2015Q3

REPORT INFORMATION
  Report Type: Other
  Country: CH (occurrence: CH)
  Receive Date: 20150909
  Receipt Date: 20150917
  Transmission Date: 20151125
  Serious: Yes (Hospitalization, Other)
  Sender: FDA-Public Use
  Company Number: CH-MYLANLABS-2015M1030090

PATIENT

DRUGS (12)
  1. ASPIRIN                            /00002701/ [Suspect]
     Active Substance: ASPIRIN
     Indication: PERIPHERAL ARTERIAL OCCLUSIVE DISEASE
     Dosage: LONG TERM
     Route: 048
  2. CIPRAMIL                           /00582602/ [Suspect]
     Active Substance: CITALOPRAM HYDROBROMIDE
     Indication: DEPRESSION
     Dosage: 1 DF, QD
     Route: 048
  3. ALLOPURINOL. [Concomitant]
     Active Substance: ALLOPURINOL
  4. NITROGLYCERIN. [Concomitant]
     Active Substance: NITROGLYCERIN
  5. TICAGRELOR [Suspect]
     Active Substance: TICAGRELOR
     Indication: ACUTE MYOCARDIAL INFARCTION
     Dosage: 90 MG, BID
     Route: 048
     Dates: start: 20150610, end: 20150612
  6. FRAGMIN [Suspect]
     Active Substance: DALTEPARIN SODIUM
     Indication: THROMBOSIS PROPHYLAXIS
     Dosage: 5000 IU, QD
     Route: 058
     Dates: start: 20150611, end: 20150615
  7. RENITEN                            /00574902/ [Concomitant]
  8. PIOGLITAZONE. [Concomitant]
     Active Substance: PIOGLITAZONE
  9. FONDAPARINUX [Suspect]
     Active Substance: FONDAPARINUX
     Indication: THROMBOSIS PROPHYLAXIS
     Dosage: 1 DF, ONCE
     Route: 058
     Dates: start: 20150610, end: 20150610
  10. PLAVIX [Suspect]
     Active Substance: CLOPIDOGREL BISULFATE
     Indication: ACUTE MYOCARDIAL INFARCTION
     Dosage: 75 MG, QD
     Route: 048
     Dates: start: 20150613
  11. METFIN [Concomitant]
     Active Substance: METFORMIN HYDROCHLORIDE
  12. DIAMICRON [Concomitant]
     Active Substance: GLICLAZIDE

REACTIONS (4)
  - Haemorrhagic anaemia [Unknown]
  - Haematuria [Recovered/Resolved]
  - Bladder tamponade [Recovered/Resolved]
  - Contraindicated drug administered [Recovered/Resolved]

NARRATIVE: CASE EVENT DATE: 2015
